FAERS Safety Report 4708762-0 (Version None)
Quarter: 2005Q3

REPORT INFORMATION
  Report Type: 
  Country: None (occurrence: None)
  Receive Date: 20050705
  Receipt Date: 20050621
  Transmission Date: 20060218
  Serious: Yes (Hospitalization, Other)
  Sender: FDA-Public Use
  Company Number: 2003165274PT

PATIENT
  Age: 75 Year
  Sex: Female

DRUGS (10)
  1. ALPRAZOLAM [Suspect]
     Indication: ILL-DEFINED DISORDER
  2. DILTIAZEM [Suspect]
     Indication: ILL-DEFINED DISORDER
     Dosage: ORAL
     Route: 048
  3. INDAPAMIDE [Suspect]
     Indication: ILL-DEFINED DISORDER
  4. LORAZEPAM [Suspect]
     Indication: ILL-DEFINED DISORDER
  5. CETRIZIN ^NM PHARMA^ (CEFATRIZINE PROPYLENGLYCOLATE SULFATE) [Suspect]
     Indication: ILL-DEFINED DISORDER
  6. DICLOFENAC SODIUM [Suspect]
     Indication: ILL-DEFINED DISORDER
  7. CELEBREX [Suspect]
     Indication: ILL-DEFINED DISORDER
  8. DIGOXIN [Suspect]
     Indication: ILL-DEFINED DISORDER
  9. DIOSMIN (DIOSMIN) [Suspect]
     Indication: ILL-DEFINED DISORDER
  10. TRIMETAZINE (TRIMETAZIDINE) [Concomitant]
     Indication: ILL-DEFINED DISORDER

REACTIONS (5)
  - ATRIAL FIBRILLATION [None]
  - BLOOD PRESSURE DECREASED [None]
  - BRADYCARDIA [None]
  - EXTRASYSTOLES [None]
  - LOSS OF CONSCIOUSNESS [None]
